FAERS Safety Report 24466335 (Version 2)
Quarter: 2024Q4

REPORT INFORMATION
  Report Type: Spontaneous
  Country: US (occurrence: US)
  Receive Date: 20241018
  Receipt Date: 20241025
  Transmission Date: 20250115
  Serious: Yes (Other)
  Sender: REGENERON
  Company Number: US-REGENERON PHARMACEUTICALS, INC.-2024-140502

PATIENT
  Sex: Female

DRUGS (2)
  1. EYLEA HD [Suspect]
     Active Substance: AFLIBERCEPT
     Indication: Macular degeneration
     Dosage: 8 MG, INTO LEFT EYE (PATIENT ON TREATMENT FOR BOTH EYES) (FORMULATION: HD VIAL)
  2. EYLEA HD [Suspect]
     Active Substance: AFLIBERCEPT
     Dosage: 8 MG, INTO BOTH EYES (FORMULATION: HD VIAL)
     Dates: start: 20241014

REACTIONS (2)
  - Eye infection bacterial [Recovering/Resolving]
  - Endophthalmitis [Not Recovered/Not Resolved]

NARRATIVE: CASE EVENT DATE: 20241015
